FAERS Safety Report 10687910 (Version 1)
Quarter: 2015Q1

REPORT INFORMATION
  Report Type: Spontaneous
  Country: ES (occurrence: ES)
  Receive Date: 20150102
  Receipt Date: 20150102
  Transmission Date: 20150720
  Serious: Yes (Hospitalization, Other)
  Sender: FDA-Public Use
  Company Number: PHHY2014ES167938

PATIENT
  Sex: Male

DRUGS (2)
  1. TASIGNA [Suspect]
     Active Substance: NILOTINIB
     Indication: CHRONIC MYELOID LEUKAEMIA
     Dosage: 300 MG, BID (/12 H)
     Route: 065
  2. TASIGNA [Suspect]
     Active Substance: NILOTINIB
     Route: 065

REACTIONS (2)
  - Bone marrow failure [Recovered/Resolved]
  - Aplasia [Not Recovered/Not Resolved]
